FAERS Safety Report 6230906-2 (Version None)
Quarter: 2009Q2

REPORT INFORMATION
  Report Type: 
  Country: None (occurrence: None)
  Receive Date: 20090616
  Receipt Date: 20090611
  Transmission Date: 20091009
  Serious: Yes (Death, Hospitalization, Other)
  Sender: FDA-Public Use
  Company Number: PHEH2009US05482

PATIENT
  Sex: Male
  Weight: 76.93 kg

DRUGS (25)
  1. EXJADE [Suspect]
     Indication: IRON OVERLOAD
     Dosage: 1500 MG, QD
     Dates: start: 20080721
  2. EXJADE [Suspect]
     Indication: MYELODYSPLASTIC SYNDROME
  3. BISACODYL [Concomitant]
     Dosage: PRN
  4. BISACODYL [Concomitant]
     Dosage: UNK
  5. FLOMAX [Suspect]
     Dosage: 04. UNK, UNK
  6. FLOMAX [Concomitant]
     Dosage: 0.4 MG DAILY
  7. FUROSEMIDE [Concomitant]
     Dosage: 20 MG DAILY
  8. MIRALAX [Concomitant]
     Dosage: 17 GM DAILY
  9. DIGOXIN [Concomitant]
     Dosage: 0.125 MG DAILY
  10. POTASSIUM CHLORIDE [Concomitant]
     Dosage: 20 MEG BID
  11. DOCUSATE [Concomitant]
     Dosage: 100 MG DAILY
  12. DUONEB [Concomitant]
     Dosage: QID
  13. LORAZEPAM [Concomitant]
     Dosage: 0.5 MG BID
  14. WARFARIN SODIUM [Concomitant]
     Dosage: 5 MG DAILY
  15. CEFTIN [Concomitant]
     Dosage: 250 BID X 7 DAYS
  16. NITROGLYCERIN ^PHARMACIA + UPJOHN^ [Concomitant]
     Dosage: PRN
     Route: 060
  17. OXYCODONE HYDROCHLORIDE W/PARACETAMOL [Concomitant]
     Dosage: 3/325, 1 Q 6 HR PRN
  18. CELEXA [Concomitant]
     Dosage: 20 MG DAILY
  19. MILK OF MAGNESIA TAB [Concomitant]
     Dosage: BID PRN
  20. NEXIUM [Concomitant]
     Dosage: 40 MG DAILY
  21. ACETAMINOPHEN [Concomitant]
     Dosage: 650 MG Q 6HR PRN
  22. CALCIUM CARBONATE [Concomitant]
  23. ERGOCALCIFEROL [Concomitant]
     Dosage: 50,000 UNITS MONTHLY
  24. DOCUSATE SODIUM W/SENNA [Concomitant]
     Dosage: 1-2 TABLETS TID PRN
  25. NUTRITION SUPPLEMENTS [Concomitant]

REACTIONS (15)
  - ASCITES [None]
  - ASPIRATION [None]
  - BRONCHITIS [None]
  - CHILLS [None]
  - DYSPHAGIA [None]
  - GASTRITIS [None]
  - GASTROOESOPHAGEAL REFLUX DISEASE [None]
  - INTERNATIONAL NORMALISED RATIO DECREASED [None]
  - MYELODYSPLASTIC SYNDROME [None]
  - OEDEMA [None]
  - PNEUMONIA [None]
  - PNEUMONIA ASPIRATION [None]
  - PYREXIA [None]
  - REGURGITATION [None]
  - ROSACEA [None]
